FAERS Safety Report 6579624-1 (Version None)
Quarter: 2010Q1

REPORT INFORMATION
  Report Type: 
  Country: None (occurrence: None)
  Receive Date: 20100212
  Receipt Date: 20100112
  Transmission Date: 20100710
  Serious: No
  Sender: FDA-Public Use
  Company Number: US-BAYER-201011089NA

PATIENT
  Age: 24 Year
  Sex: Male

DRUGS (4)
  1. NEXAVAR [Suspect]
     Indication: COLORECTAL CANCER
     Dosage: PRESCRIPTION #23110 FROM SOUTHERN FAMILY PHARMACY, 9432 KATY FREEWAY, HOUSTON TX 77055
     Dates: start: 20091201
  2. DERMAL THERAPY [Concomitant]
  3. ERBITUX [Concomitant]
  4. DECTIBIX [Concomitant]

REACTIONS (1)
  - RASH [None]
